FAERS Safety Report 10783632 (Version 2)
Quarter: 2015Q2

REPORT INFORMATION
  Report Type: Spontaneous
  Country: DE (occurrence: DE)
  Receive Date: 20150210
  Receipt Date: 20150410
  Transmission Date: 20150821
  Serious: Yes (Hospitalization)
  Sender: FDA-Public Use
  Company Number: DE-PFIZER INC-2015049574

PATIENT
  Age: 69 Year
  Sex: Male
  Weight: 169 kg

DRUGS (4)
  1. SPALT SCHMERZTABLETTEN [Suspect]
     Active Substance: ACETAMINOPHEN\ASPIRIN
     Indication: HEADACHE
     Dosage: 2 DF, WEEKLY
     Route: 048
  2. GELONIDA [Concomitant]
     Active Substance: ACETAMINOPHEN\CODEINE PHOSPHATE
     Indication: MIGRAINE
     Dosage: 2 DF, WEEKLY
  3. RAMIPRIL COMP LS [Suspect]
     Active Substance: HYDROCHLOROTHIAZIDE\RAMIPRIL
     Indication: HYPERTENSION
     Dosage: 1 DF, 1X/DAY
     Route: 048
  4. SUTENT [Suspect]
     Active Substance: SUNITINIB MALATE
     Indication: METASTATIC RENAL CELL CARCINOMA
     Dosage: UNK, 1X/DAY IN THE MORNING
     Dates: start: 2014

REACTIONS (1)
  - Creatinine renal clearance increased [Recovered/Resolved]

NARRATIVE: CASE EVENT DATE: 201501
